FAERS Safety Report 6714278-2 (Version None)
Quarter: 2010Q2

REPORT INFORMATION
  Report Type: 
  Country: None (occurrence: None)
  Receive Date: 20100506
  Receipt Date: 20100106
  Transmission Date: 20101027
  Serious: No
  Sender: FDA-Public Use
  Company Number: US-BAUSCH-2010BL000083

PATIENT
  Age: 59 Year
  Sex: Female

DRUGS (4)
  1. LOTEMAX [Suspect]
     Indication: EYE INFLAMMATION
     Route: 047
     Dates: start: 20090901, end: 20091001
  2. LOTEMAX [Suspect]
     Indication: DRY EYE
     Route: 047
     Dates: start: 20090901, end: 20091001
  3. CLONIDINE [Concomitant]
  4. REFRESH PM [Concomitant]

REACTIONS (1)
  - EYE IRRITATION [None]
